FAERS Safety Report 12933898 (Version 1)
Quarter: 2016Q4

REPORT INFORMATION
  Report Type: Spontaneous
  Country: RO (occurrence: RO)
  Receive Date: 20161111
  Receipt Date: 20161111
  Transmission Date: 20170207
  Serious: Yes (Other)
  Sender: FDA-Public Use
  Company Number: RO-JNJFOC-20161106301

PATIENT

DRUGS (1)
  1. INFLIXIMAB, RECOMBINANT [Suspect]
     Active Substance: INFLIXIMAB
     Indication: CROHN^S DISEASE
     Dosage: INDUCTION THERAPY WITH IFX 5 MG/KG 0,2,6 WEEKS, FOLLOWED BY MAINTENANCE THERAPY 5 MG/KG AT 8 WEEKS.
     Route: 042
     Dates: start: 200501, end: 201406

REACTIONS (7)
  - Small intestinal obstruction [Unknown]
  - Fistula [Unknown]
  - Surgery [Unknown]
  - Crohn^s disease [Unknown]
  - Post procedural complication [Unknown]
  - Abscess [Unknown]
  - Therapeutic response decreased [Unknown]
